FAERS Safety Report 23655340 (Version 1)
Quarter: 2024Q1

REPORT INFORMATION
  Report Type: Spontaneous
  Country: CA (occurrence: CA)
  Receive Date: 20240320
  Receipt Date: 20240320
  Transmission Date: 20240410
  Serious: Yes (Other)
  Sender: FDA-Public Use
  Company Number: CA-SUN PHARMACEUTICAL INDUSTRIES LTD-2024R1-437312

PATIENT

DRUGS (8)
  1. CINACALCET [Suspect]
     Active Substance: CINACALCET
     Indication: Hyperparathyroidism
     Dosage: UNK
     Route: 064
  2. CINACALCET [Suspect]
     Active Substance: CINACALCET
     Indication: Hypercalcaemia
  3. PAMIDRONATE [Suspect]
     Active Substance: PAMIDRONATE DISODIUM
     Indication: Hypercalcaemia
     Dosage: UNK
     Route: 064
  4. PAMIDRONATE [Suspect]
     Active Substance: PAMIDRONATE DISODIUM
     Indication: Hyperparathyroidism
  5. ZOLEDRONIC ACID [Suspect]
     Active Substance: ZOLEDRONIC ACID
     Indication: Hyperparathyroidism
     Dosage: UNK
     Route: 064
  6. ZOLEDRONIC ACID [Suspect]
     Active Substance: ZOLEDRONIC ACID
     Indication: Hypercalcaemia
  7. CALCITONIN [Suspect]
     Active Substance: CALCITONIN
     Indication: Hypercalcaemia
     Dosage: UNK
     Route: 064
  8. CALCITONIN [Suspect]
     Active Substance: CALCITONIN
     Indication: Hyperparathyroidism

REACTIONS (3)
  - Foetal exposure during pregnancy [Unknown]
  - Premature baby [Unknown]
  - Foetal heart rate deceleration abnormality [Unknown]
